FAERS Safety Report 7912086-8 (Version None)
Quarter: 2011Q4

REPORT INFORMATION
  Report Type: 
  Country: None (occurrence: None)
  Receive Date: 20111114
  Receipt Date: 20111108
  Transmission Date: 20120403
  Serious: Yes (Other)
  Sender: FDA-Public Use
  Company Number: US-JNJFOC-20111104748

PATIENT
  Age: 78 Year
  Sex: Female

DRUGS (1)
  1. NICOTROL [Suspect]
     Indication: SMOKING CESSATION THERAPY
     Route: 065

REACTIONS (3)
  - COUGH [None]
  - DRUG INTOLERANCE [None]
  - DYSPNOEA [None]
